FAERS Safety Report 5882934-4 (Version None)
Quarter: 2008Q3

REPORT INFORMATION
  Report Type: 
  Country: None (occurrence: None)
  Receive Date: 20080913
  Receipt Date: 20080821
  Transmission Date: 20090109
  Serious: No
  Sender: FDA-Public Use
  Company Number: US-ABBOTT-08P-163-0471995-00

PATIENT
  Sex: Female
  Weight: 61.29 kg

DRUGS (10)
  1. HUMIRA [Suspect]
     Indication: CROHN'S DISEASE
     Dosage: LOADING DOSE (4 PENS)
     Route: 050
     Dates: start: 20080819, end: 20080819
  2. HUMIRA [Suspect]
     Route: 050
  3. VALACYCLOVIR [Concomitant]
     Indication: ORAL HERPES
     Route: 048
     Dates: start: 20060101
  4. OMEPRAZOLE [Concomitant]
     Indication: GASTROOESOPHAGEAL REFLUX DISEASE
     Route: 048
     Dates: start: 20000101
  5. FOLIC ACID [Concomitant]
     Indication: CROHN'S DISEASE
     Route: 048
     Dates: start: 20000101
  6. ATORVASTATIN CALCIUM [Concomitant]
     Indication: BLOOD CHOLESTEROL INCREASED
     Route: 048
     Dates: start: 20070101
  7. EZETIMIBE [Concomitant]
     Indication: BLOOD CHOLESTEROL INCREASED
     Route: 048
     Dates: start: 20070101
  8. PROGESTERONE [Concomitant]
     Indication: DRUG USE FOR UNKNOWN INDICATION
     Dosage: 1 PILL- DOSE NOT KNOWN
     Route: 048
     Dates: start: 20020101
  9. ESTRADIOL CIPIONATE [Concomitant]
     Indication: DRUG USE FOR UNKNOWN INDICATION
     Route: 048
     Dates: start: 20020101
  10. VICODIN [Concomitant]
     Indication: PAIN
     Dosage: 10/15 MG ONCE A DAY
     Route: 048
     Dates: start: 20070101

REACTIONS (1)
  - ACCIDENTAL EXPOSURE [None]
